FAERS Safety Report 8519072-8 (Version None)
Quarter: 2012Q3

REPORT INFORMATION
  Report Type: 
  Country: None (occurrence: None)
  Receive Date: 20120718
  Receipt Date: 20120712
  Transmission Date: 20120928
  Serious: Yes (Other)
  Sender: FDA-Public Use
  Company Number: GB-PFIZER INC-2012168108

PATIENT
  Age: 73 Year
  Sex: Male

DRUGS (4)
  1. LORAZEPAM [Concomitant]
  2. PHENYTOIN SODIUM [Suspect]
     Route: 042
  3. DIAZEPAM [Concomitant]
  4. PHENYTOIN SODIUM [Suspect]
     Indication: EPILEPSY
     Route: 042

REACTIONS (1)
  - PURPLE GLOVE SYNDROME [None]
